FAERS Safety Report 4998620-9 (Version None)
Quarter: 2006Q2

REPORT INFORMATION
  Report Type: 
  Country: None (occurrence: None)
  Receive Date: 20060508
  Receipt Date: 20060420
  Transmission Date: 20061013
  Serious: Yes (Disabling, Other)
  Sender: FDA-Public Use
  Company Number: ACO_0231_2006

PATIENT
  Age: 49 Year
  Sex: Male
  Weight: 80 kg

DRUGS (4)
  1. SIRDALUD [Suspect]
     Indication: BACK PAIN
     Dosage: 2 MG QDAY PO
     Route: 048
  2. PAMELOR [Suspect]
     Indication: BACK PAIN
     Dosage: 25 MG TID
     Dates: start: 20040701
  3. AMLODIPINE [Concomitant]
  4. GLUCAMETACIN [Concomitant]

REACTIONS (7)
  - FALL [None]
  - INTERVERTEBRAL DISC DISORDER [None]
  - MYELOPATHY [None]
  - PAIN [None]
  - SOMNOLENCE [None]
  - SPINAL OSTEOARTHRITIS [None]
  - SPONDYLOLISTHESIS [None]
